FAERS Safety Report 4363720-3 (Version None)
Quarter: 2004Q2

REPORT INFORMATION
  Report Type: 
  Country: None (occurrence: None)
  Receive Date: 20040521
  Receipt Date: 20040521
  Transmission Date: 20050107
  Serious: Yes (Hospitalization)
  Sender: FDA-Public Use
  Company Number: None

PATIENT
  Sex: Male
  Weight: 91.6266 kg

DRUGS (19)
  1. EPTIFIBATIDE [Suspect]
     Indication: CATHETERISATION CARDIAC
     Dosage: BOLUS TWICE INTRAVENOUS
     Route: 042
     Dates: start: 20031230, end: 20031230
  2. EPTIFIBATIDE [Suspect]
     Indication: CATHETERISATION CARDIAC
     Dosage: 16ML/HR INFUSION INTRAVENOUS
     Route: 042
     Dates: start: 20031230, end: 20031230
  3. TRAZODONE HCL [Concomitant]
  4. GATIFLOXACIN [Concomitant]
  5. CLOPIDOGREL BISUFATE [Concomitant]
  6. OXYCODONE [Concomitant]
  7. ACETAMIN [Concomitant]
  8. ASPIRIN [Concomitant]
  9. DILTIAZEM [Concomitant]
  10. BISACODYL [Concomitant]
  11. DOCUSATE SODIUM [Concomitant]
  12. SIMETHICONE [Concomitant]
  13. RABEPRAZOLE SODIUM [Concomitant]
  14. REGULAR INSULIN [Concomitant]
  15. NITROGLYCERINE SL [Concomitant]
  16. ISOSORBIDE DINITRATE [Concomitant]
  17. ALBUTEROL [Concomitant]
  18. IPRATROPIUM BR [Concomitant]
  19. ACETYLCYSTEINE [Concomitant]

REACTIONS (2)
  - GROIN PAIN [None]
  - HAEMATOCRIT DECREASED [None]
